FAERS Safety Report 8190151-0 (Version None)
Quarter: 2012Q1

REPORT INFORMATION
  Report Type: 
  Country: None (occurrence: None)
  Receive Date: 20120305
  Receipt Date: 20120222
  Transmission Date: 20120608
  Serious: Yes (Hospitalization)
  Sender: FDA-Public Use
  Company Number: 2012SP010277

PATIENT
  Age: 55 Year
  Sex: Female

DRUGS (8)
  1. SYNTHROID [Concomitant]
  2. ZELNORM [Concomitant]
  3. NEXIUM [Concomitant]
  4. PREMARIN [Concomitant]
  5. PEG-INTRON [Suspect]
     Indication: PRODUCT USED FOR UNKNOWN INDICATION
     Dates: start: 20040801
  6. REBETOL [Suspect]
     Indication: PRODUCT USED FOR UNKNOWN INDICATION
     Dates: start: 20040801
  7. LEXAPRO [Concomitant]
  8. ALPHAGAN [Concomitant]

REACTIONS (4)
  - NAUSEA [None]
  - ENCEPHALITIS [None]
  - VOMITING [None]
  - RASH [None]
